FAERS Safety Report 10026892 (Version 1)
Quarter: 2014Q1

REPORT INFORMATION
  Report Type: Spontaneous
  Country: CN (occurrence: CN)
  Receive Date: 20140321
  Receipt Date: 20140321
  Transmission Date: 20141002
  Serious: No
  Sender: FDA-Public Use
  Company Number: CN-JNJFOC-20140308013

PATIENT
  Age: 63 Year
  Sex: Female

DRUGS (4)
  1. DUROGESIC D-TRANS [Suspect]
     Indication: CANCER PAIN
     Dosage: 12.5 UG/HR EVERY 3 DAYS (SPLIT ONE HALF??PIECE OF PATCH)
     Route: 062
  2. DUROGESIC D-TRANS [Suspect]
     Indication: CANCER PAIN
     Dosage: 2 PIECES PF PATCH THIRD DAY
     Route: 062
  3. DUROGESIC D-TRANS [Suspect]
     Indication: CANCER PAIN
     Dosage: 2 NEW PIECES OF PATCH THE FIFTH DAY
     Route: 062
  4. DUROGESIC D-TRANS [Suspect]
     Indication: CANCER PAIN
     Dosage: 2 PIECES OF PATCH FIRST DAY
     Route: 062
     Dates: start: 20140308

REACTIONS (6)
  - Oliguria [Not Recovered/Not Resolved]
  - Inappropriate schedule of drug administration [Unknown]
  - Constipation [Not Recovered/Not Resolved]
  - Oedema peripheral [Not Recovered/Not Resolved]
  - Treatment noncompliance [Unknown]
  - Wrong technique in drug usage process [Unknown]
